FAERS Safety Report 13293193 (Version 4)
Quarter: 2020Q1

REPORT INFORMATION
  Report Type: Spontaneous
  Country: US (occurrence: US)
  Receive Date: 20170303
  Receipt Date: 20200324
  Transmission Date: 20200409
  Serious: Yes (Death, Hospitalization)
  Sender: FDA-Public Use
  Company Number: US-JNJFOC-20170115920

PATIENT
  Age: 64 Year
  Sex: Female

DRUGS (1)
  1. XARELTO [Suspect]
     Active Substance: RIVAROXABAN
     Indication: DEEP VEIN THROMBOSIS
     Route: 048
     Dates: start: 20151229, end: 20160104

REACTIONS (2)
  - Large intestinal ulcer haemorrhage [Recovering/Resolving]
  - Ischaemic skin ulcer [Unknown]

NARRATIVE: CASE EVENT DATE: 20151230
